FAERS Safety Report 7861999-4 (Version None)
Quarter: 2011Q4

REPORT INFORMATION
  Report Type: 
  Country: None (occurrence: None)
  Receive Date: 20111026
  Receipt Date: 20111011
  Transmission Date: 20120403
  Serious: Yes (Hospitalization)
  Sender: FDA-Public Use
  Company Number: FK201102299

PATIENT
  Age: 74 Year
  Sex: Male

DRUGS (5)
  1. LEUCOVORIN CALCIUM [Suspect]
     Indication: COLON CANCER METASTATIC
     Dosage: 100 MG/M2, ON DAY 1
  2. CEFEPIME [Suspect]
  3. GRANULOCYTE COLONGY STIMULATING FACTOR (GRANULOCYTE COLONY STIMULATING [Concomitant]
  4. FLUOROURACIL [Suspect]
     Indication: COLON CANCER METASTATIC
     Dosage: 400 MG/M2, ON DAY 1 AND 2
  5. OXALIPLATIN [Suspect]
     Indication: COLON CANCER METASTATIC
     Dosage: 85 MG/M2, ON DAY 1

REACTIONS (6)
  - DISSEMINATED INTRAVASCULAR COAGULATION [None]
  - PSEUDOMEMBRANOUS COLITIS [None]
  - TACHYCARDIA [None]
  - FEBRILE NEUTROPENIA [None]
  - INTESTINAL OBSTRUCTION [None]
  - LEUKOPENIA [None]
